FAERS Safety Report 20177509 (Version 4)
Quarter: 2022Q1

REPORT INFORMATION
  Report Type: Spontaneous
  Country: JP (occurrence: JP)
  Receive Date: 20211213
  Receipt Date: 20220128
  Transmission Date: 20220423
  Serious: Yes (Hospitalization)
  Sender: FDA-Public Use
  Company Number: JP-DSJP-DSJ-2021-120223

PATIENT
  Age: 57 Year
  Sex: Male

DRUGS (2)
  1. ENHERTU [Suspect]
     Active Substance: FAM-TRASTUZUMAB DERUXTECAN-NXKI
     Indication: Adenocarcinoma gastric
     Dosage: 6.4 MG/KG, ONCE EVERY 3 WK
     Route: 041
     Dates: start: 20210618, end: 20210618
  2. ENHERTU [Suspect]
     Active Substance: FAM-TRASTUZUMAB DERUXTECAN-NXKI
     Dosage: 6.4 MG/KG, ONCE EVERY 3 WK
     Route: 041
     Dates: start: 20210716, end: 20210716

REACTIONS (5)
  - Pneumonia aspiration [Recovering/Resolving]
  - Pyrexia [Recovered/Resolved]
  - Anaemia [Recovered/Resolved]
  - Disease progression [Unknown]
  - Metastases to central nervous system [Unknown]

NARRATIVE: CASE EVENT DATE: 20210709
